FAERS Safety Report 17814600 (Version 3)
Quarter: 2020Q3

REPORT INFORMATION
  Report Type: Spontaneous
  Country: US (occurrence: US)
  Receive Date: 20200522
  Receipt Date: 20200713
  Transmission Date: 20201102
  Serious: No
  Sender: FDA-Public Use
  Company Number: US-BRISTOL-MYERS SQUIBB COMPANY-BMS-2020-040380

PATIENT
  Sex: Male

DRUGS (3)
  1. SPRYCEL [Suspect]
     Active Substance: DASATINIB
     Indication: RECTAL NEOPLASM
     Dosage: 140 MILLIGRAM, QD
     Route: 048
     Dates: start: 20200506
  2. SPRYCEL [Suspect]
     Active Substance: DASATINIB
     Indication: CHRONIC HEPATITIS C
  3. SPRYCEL [Suspect]
     Active Substance: DASATINIB
     Indication: NEOPLASM MALIGNANT
     Dosage: 70 MILLIGRAM, BID
     Route: 048
     Dates: start: 20200506

REACTIONS (6)
  - Fatigue [Unknown]
  - Diarrhoea [Unknown]
  - Intentional product use issue [Unknown]
  - Off label use [Unknown]
  - Myalgia [Unknown]
  - Nausea [Unknown]
